FAERS Safety Report 9053415 (Version 1)
Quarter: 2013Q1

REPORT INFORMATION
  Report Type: Spontaneous
  Country: TH (occurrence: TH)
  Receive Date: 20130208
  Receipt Date: 20130208
  Transmission Date: 20140127
  Serious: Yes (Death, Hospitalization, Other)
  Sender: FDA-Public Use
  Company Number: PHHY2013TH011572

PATIENT
  Age: 52 Year
  Sex: Male

DRUGS (1)
  1. ZOMETA [Suspect]
     Indication: METASTASES TO BONE
     Dosage: 4 MG MONTHLY
     Route: 041

REACTIONS (6)
  - Lung neoplasm malignant [Fatal]
  - Cerebral infarction [Unknown]
  - Syncope [Unknown]
  - Loss of consciousness [Unknown]
  - Pulmonary oedema [Unknown]
  - Hypophagia [Unknown]
